FAERS Safety Report 21423972 (Version 1)
Quarter: 2022Q4

REPORT INFORMATION
  Report Type: Report from Study
  Country: HU (occurrence: HU)
  Receive Date: 20221007
  Receipt Date: 20221007
  Transmission Date: 20230113
  Serious: Yes (Death, Hospitalization)
  Sender: FDA-Public Use
  Company Number: DE-CRI-0741-SAE01696

PATIENT
  Age: 83 Year
  Sex: Male
  Weight: 106 kg

DRUGS (3)
  1. ASPIRIN [Suspect]
     Active Substance: ASPIRIN
     Indication: Atrial fibrillation
     Dosage: 150 DF, QD
     Route: 048
     Dates: start: 20181008, end: 20220329
  2. EDOXABAN TOSYLATE [Suspect]
     Active Substance: EDOXABAN TOSYLATE
     Indication: Atrial fibrillation
     Dosage: 150 DF, QD
     Route: 048
     Dates: start: 20181008, end: 20220329
  3. EDOXABAN TOSYLATE [Suspect]
     Active Substance: EDOXABAN TOSYLATE
     Indication: Atrial fibrillation
     Dosage: 150 DF, QD
     Route: 048
     Dates: start: 20181008, end: 20220329

REACTIONS (7)
  - Respiratory failure [Fatal]
  - Pneumonia [Fatal]
  - Coronavirus test positive [Fatal]
  - Multiple organ dysfunction syndrome [Fatal]
  - Colonoscopy [Fatal]
  - Endoscopy upper gastrointestinal tract [Fatal]
  - Anaemia [Fatal]

NARRATIVE: CASE EVENT DATE: 20220329
